FAERS Safety Report 25492117 (Version 4)
Quarter: 2025Q4

REPORT INFORMATION
  Report Type: Report from Study
  Country: JP (occurrence: JP)
  Receive Date: 20250630
  Receipt Date: 20251008
  Transmission Date: 20260117
  Serious: Yes (Death, Life-Threatening, Hospitalization, Other)
  Sender: AMGEN
  Company Number: JP-KISSEI-TV20240659_P_1

PATIENT
  Age: 80 Year
  Sex: Female
  Weight: 41.2 kg

DRUGS (123)
  1. AVACOPAN [Suspect]
     Active Substance: AVACOPAN
     Indication: Granulomatosis with polyangiitis
     Dosage: 30,MG,BID
     Route: 048
     Dates: start: 20230525, end: 20240207
  2. PREDNISOLONE [Suspect]
     Active Substance: PREDNISOLONE
     Indication: Granulomatosis with polyangiitis
     Dosage: 20,MG,QD
     Route: 048
     Dates: end: 2023
  3. PREDNISOLONE [Suspect]
     Active Substance: PREDNISOLONE
     Indication: Pneumonia
     Dosage: 17,MG,QD
     Route: 048
     Dates: start: 2023, end: 2023
  4. PREDNISOLONE [Suspect]
     Active Substance: PREDNISOLONE
     Dosage: 14,MG,QD
     Route: 048
     Dates: start: 2023, end: 2023
  5. PREDNISOLONE [Suspect]
     Active Substance: PREDNISOLONE
     Dosage: 20,MG,QD
     Route: 048
     Dates: start: 2023, end: 2023
  6. PREDNISOLONE [Suspect]
     Active Substance: PREDNISOLONE
     Dosage: 15,MG,QD
     Route: 048
     Dates: start: 2023, end: 2023
  7. PREDNISOLONE [Suspect]
     Active Substance: PREDNISOLONE
     Dosage: 14,MG,QD
     Route: 048
     Dates: start: 2023, end: 2023
  8. PREDNISOLONE [Suspect]
     Active Substance: PREDNISOLONE
     Dosage: 13,MG,QD
     Route: 048
     Dates: start: 2023, end: 2023
  9. PREDNISOLONE [Suspect]
     Active Substance: PREDNISOLONE
     Dosage: 15 MG, QD
     Route: 048
     Dates: start: 2024, end: 2024
  10. PREDNISOLONE [Suspect]
     Active Substance: PREDNISOLONE
     Dosage: 20 MG, QD
     Route: 040
     Dates: start: 2024, end: 2024
  11. PREDNISOLONE [Suspect]
     Active Substance: PREDNISOLONE
     Dosage: 25 MG, QD
     Route: 040
     Dates: start: 2024, end: 2024
  12. RITUXIMAB [Suspect]
     Active Substance: RITUXIMAB
     Indication: Granulomatosis with polyangiitis
     Dosage: UNK,UNK,UNK
     Route: 040
  13. RITUXIMAB [Suspect]
     Active Substance: RITUXIMAB
     Indication: Granulomatosis with polyangiitis
     Dosage: 500 MG
     Route: 040
     Dates: start: 2023, end: 2023
  14. RITUXIMAB [Suspect]
     Active Substance: RITUXIMAB
     Dosage: 500 MG
     Route: 040
     Dates: start: 2023, end: 2023
  15. RITUXIMAB [Suspect]
     Active Substance: RITUXIMAB
     Dosage: 500 MG
     Route: 040
     Dates: start: 2023, end: 2023
  16. RITUXIMAB [Suspect]
     Active Substance: RITUXIMAB
     Dosage: 500 MG
     Route: 040
     Dates: start: 2023, end: 2023
  17. RITUXIMAB [Suspect]
     Active Substance: RITUXIMAB
     Dosage: 500 MG
     Route: 040
     Dates: start: 2023, end: 2023
  18. NOREPINEPHRINE [Suspect]
     Active Substance: NOREPINEPHRINE
     Indication: Renal failure
     Dosage: UNK
     Route: 040
  19. NOREPINEPHRINE [Suspect]
     Active Substance: NOREPINEPHRINE
     Dosage: UNK
     Route: 040
  20. SOLU-MEDROL [Suspect]
     Active Substance: METHYLPREDNISOLONE SODIUM SUCCINATE
     Indication: Granulomatosis with polyangiitis
     Dosage: 500 MG, QD
     Route: 040
  21. SOLU-MEDROL [Suspect]
     Active Substance: METHYLPREDNISOLONE SODIUM SUCCINATE
     Indication: Granulomatosis with polyangiitis
     Dosage: 500 MG, QD
     Route: 040
  22. SOLU-CORTEF [Concomitant]
     Active Substance: HYDROCORTISONE SODIUM SUCCINATE
     Indication: Prophylaxis
     Dosage: 200,MG,QD
     Route: 040
     Dates: start: 20230526, end: 20230526
  23. SOLU-CORTEF [Concomitant]
     Active Substance: HYDROCORTISONE SODIUM SUCCINATE
     Dosage: 200,MG,QD
     Route: 040
     Dates: start: 20230602, end: 20230602
  24. SOLU-CORTEF [Concomitant]
     Active Substance: HYDROCORTISONE SODIUM SUCCINATE
     Dosage: 200,MG,QD
     Route: 040
     Dates: start: 20230609, end: 20230609
  25. SOLU-CORTEF [Concomitant]
     Active Substance: HYDROCORTISONE SODIUM SUCCINATE
     Dosage: 200 MG, QD
     Route: 040
     Dates: start: 20231208, end: 20231208
  26. SOLU-CORTEF [Concomitant]
     Active Substance: HYDROCORTISONE SODIUM SUCCINATE
     Dosage: 200 MG, QD
     Route: 040
     Dates: start: 20231221, end: 20231221
  27. Denosine [Concomitant]
     Indication: Antifungal prophylaxis
     Dosage: 90,MG,QD
     Route: 040
     Dates: end: 20230530
  28. SULFAMETHOXAZOLE\TRIMETHOPRIM [Concomitant]
     Active Substance: SULFAMETHOXAZOLE\TRIMETHOPRIM
     Indication: Antifungal prophylaxis
     Dosage: 480,MG,QD
     Route: 048
     Dates: end: 20240115
  29. SULFAMETHOXAZOLE\TRIMETHOPRIM [Concomitant]
     Active Substance: SULFAMETHOXAZOLE\TRIMETHOPRIM
     Indication: Antifungal prophylaxis
     Dosage: 480 MG, QD
     Route: 048
     Dates: start: 20240116, end: 20240205
  30. FUNGIZONE [Concomitant]
     Active Substance: AMPHOTERICIN B
     Indication: Antifungal prophylaxis
     Dosage: 300,MG,QD
     Route: 048
     Dates: start: 20230528, end: 20240127
  31. AMOXICILLIN [Concomitant]
     Active Substance: AMOXICILLIN
     Indication: Antifungal prophylaxis
     Dosage: 750,MG,QD
     Route: 048
     Dates: start: 20230829, end: 20230901
  32. WATER FOR INJECTION [Concomitant]
     Active Substance: WATER
     Dosage: UNK,UNK,UNK
     Route: 040
     Dates: end: 20230530
  33. WATER FOR INJECTION [Concomitant]
     Active Substance: WATER
     Dosage: UNK,UNK,UNK
     Route: 040
     Dates: start: 20230819, end: 20230821
  34. ISOTONIC SODIUM CHLORIDE SOLUTION [Concomitant]
     Active Substance: SODIUM CHLORIDE
     Dosage: UNK,UNK,UNK
     Route: 040
     Dates: end: 20230530
  35. HEPARIN SODIUM [Concomitant]
     Active Substance: HEPARIN SODIUM
     Dosage: UNK,UNK,UNK
     Route: 040
     Dates: end: 20230601
  36. HEPARIN SODIUM [Concomitant]
     Active Substance: HEPARIN SODIUM
     Dosage: UNK
     Route: 040
     Dates: start: 20231207, end: 20231208
  37. HEPARIN SODIUM [Concomitant]
     Active Substance: HEPARIN SODIUM
     Dosage: UNK
     Route: 040
     Dates: start: 20240117, end: 20240130
  38. CODEINE PHOSPHATE [Concomitant]
     Active Substance: CODEINE PHOSPHATE
     Indication: Cough
     Dosage: POWDER MEDICINE
     Route: 048
     Dates: end: 20230526
  39. CODEINE PHOSPHATE [Concomitant]
     Active Substance: CODEINE PHOSPHATE
     Dosage: POWDER MEDICINE
     Route: 048
     Dates: start: 20231109, end: 20231209
  40. CARBOCYSTEINE [Concomitant]
     Active Substance: CARBOCYSTEINE
     Dosage: UNK,UNK,UNK
     Route: 048
     Dates: end: 20231012
  41. CARBOCYSTEINE [Concomitant]
     Active Substance: CARBOCYSTEINE
     Dosage: UNK
     Route: 048
     Dates: start: 20231109, end: 20240115
  42. CARBOCYSTEINE [Concomitant]
     Active Substance: CARBOCYSTEINE
     Dosage: UNK
     Route: 048
     Dates: start: 20240116, end: 20240207
  43. MIYA-BM [Concomitant]
     Active Substance: CLOSTRIDIUM BUTYRICUM SPORES STRAIN M-55
     Dosage: UNK,UNK,UNK
     Route: 048
     Dates: end: 20230921
  44. CARBOHYDRATES\FATTY ACIDS\MINERALS\PROTEIN\VITAMINS [Concomitant]
     Active Substance: CARBOHYDRATES\FATTY ACIDS\MINERALS\PROTEIN\VITAMINS
     Dosage: TUBE; LIQUID MEDICINE FOR INTERNAL USE
     Dates: end: 20230526
  45. VONOPRAZAN FUMARATE [Concomitant]
     Active Substance: VONOPRAZAN FUMARATE
     Dosage: UNK,UNK,UNK
     Route: 048
     Dates: end: 20230526
  46. CALONAL [Concomitant]
     Active Substance: ACETAMINOPHEN
     Indication: Premedication
     Dosage: UNK,UNK,UNK
     Route: 048
     Dates: end: 20230609
  47. CALONAL [Concomitant]
     Active Substance: ACETAMINOPHEN
     Dosage: UNK,UNK,UNK
     Route: 048
     Dates: start: 20230612, end: 20230612
  48. CALONAL [Concomitant]
     Active Substance: ACETAMINOPHEN
     Dosage: UNK
     Route: 048
     Dates: start: 20231208, end: 20231208
  49. CALONAL [Concomitant]
     Active Substance: ACETAMINOPHEN
     Dosage: UNK
     Route: 048
     Dates: start: 20231221, end: 20231221
  50. CHLORPHENIRAMINE MALEATE [Concomitant]
     Active Substance: CHLORPHENIRAMINE MALEATE
     Dosage: UNK,UNK,UNK
     Route: 040
     Dates: end: 20230609
  51. CHLORPHENIRAMINE MALEATE [Concomitant]
     Active Substance: CHLORPHENIRAMINE MALEATE
     Dosage: UNK
     Route: 040
     Dates: start: 20231208, end: 20231208
  52. CHLORPHENIRAMINE MALEATE [Concomitant]
     Active Substance: CHLORPHENIRAMINE MALEATE
     Dosage: UNK
     Route: 040
     Dates: start: 20231221, end: 20231221
  53. SODIUM CHLORIDE [Concomitant]
     Active Substance: SODIUM CHLORIDE
     Dosage: UNK,UNK,UNK
     Route: 040
     Dates: end: 20230609
  54. SODIUM CHLORIDE [Concomitant]
     Active Substance: SODIUM CHLORIDE
     Dosage: UNK,UNK,UNK
     Route: 040
     Dates: start: 20230818, end: 20230818
  55. SODIUM CHLORIDE [Concomitant]
     Active Substance: SODIUM CHLORIDE
     Dosage: UNK,UNK,UNK
     Route: 040
     Dates: start: 20230819, end: 20230819
  56. SODIUM CHLORIDE [Concomitant]
     Active Substance: SODIUM CHLORIDE
     Dosage: UNK,UNK,UNK
     Route: 040
     Dates: start: 20230819, end: 20230819
  57. SODIUM CHLORIDE [Concomitant]
     Active Substance: SODIUM CHLORIDE
     Dosage: UNK,UNK,UNK
     Route: 040
     Dates: start: 20230820, end: 20230826
  58. SODIUM CHLORIDE [Concomitant]
     Active Substance: SODIUM CHLORIDE
     Dosage: UNK,UNK,UNK
     Route: 040
     Dates: start: 20230822, end: 20230822
  59. SODIUM CHLORIDE [Concomitant]
     Active Substance: SODIUM CHLORIDE
     Dosage: UNK,UNK,UNK
     Route: 040
     Dates: start: 20230823, end: 20230825
  60. SODIUM CHLORIDE [Concomitant]
     Active Substance: SODIUM CHLORIDE
     Dosage: UNK,UNK,UNK
     Route: 040
     Dates: start: 20230826, end: 20230828
  61. SODIUM CHLORIDE [Concomitant]
     Active Substance: SODIUM CHLORIDE
     Dosage: UNK,UNK,UNK
     Route: 040
     Dates: start: 20230826, end: 20230827
  62. SODIUM CHLORIDE [Concomitant]
     Active Substance: SODIUM CHLORIDE
     Dosage: UNK,UNK,UNK
     Route: 040
     Dates: start: 20230828, end: 20230828
  63. TENELIGLIPTIN HYDROBROMIDE HYDRATE [Concomitant]
     Active Substance: TENELIGLIPTIN HYDROBROMIDE HYDRATE
     Indication: Diabetes mellitus
     Dosage: UNK,UNK,UNK
     Route: 048
     Dates: end: 20231012
  64. TENELIGLIPTIN HYDROBROMIDE HYDRATE [Concomitant]
     Active Substance: TENELIGLIPTIN HYDROBROMIDE HYDRATE
     Dosage: UNK,UNK,UNK
     Route: 048
     Dates: start: 20231013, end: 20240115
  65. ESOMEPRAZOLE [Concomitant]
     Active Substance: ESOMEPRAZOLE
     Indication: Prophylaxis
     Dosage: UNK,UNK,UNK
     Route: 048
     Dates: start: 20230527, end: 20240115
  66. ELDECALCITOL [Concomitant]
     Active Substance: ELDECALCITOL
     Dosage: UNK,UNK,UNK
     Route: 048
     Dates: end: 20240115
  67. STERILE PURIFIED WATER [Concomitant]
     Active Substance: WATER
     Dosage: UNK,UNK,UNK
     Route: 048
     Dates: start: 20230528, end: 20240127
  68. LOXOPROFEN SODIUM [Concomitant]
     Active Substance: LOXOPROFEN SODIUM
     Indication: Arthralgia
     Dosage: 100,MG,UNK
     Route: 062
     Dates: start: 20230531, end: 20230612
  69. LOXOPROFEN SODIUM [Concomitant]
     Active Substance: LOXOPROFEN SODIUM
     Dosage: 50,MG,UNK
     Route: 062
     Dates: start: 20230613, end: 20231213
  70. LOXOPROFEN SODIUM [Concomitant]
     Active Substance: LOXOPROFEN SODIUM
     Dosage: UNK
     Route: 062
     Dates: start: 20240101, end: 20240114
  71. LOXOPROFEN SODIUM [Concomitant]
     Active Substance: LOXOPROFEN SODIUM
     Dosage: UNK
     Route: 062
     Dates: start: 20240110, end: 20240123
  72. Lochol [Concomitant]
     Indication: Hyperlipidaemia
     Dosage: UNK,UNK,UNK
     Route: 048
     Dates: start: 20230605
  73. OFLOXACIN [Concomitant]
     Active Substance: OFLOXACIN
     Indication: Granulomatosis with polyangiitis
     Dosage: EAR DROP
     Route: 001
     Dates: start: 20230612, end: 2024
  74. CALCIUM CHLORIDE ANHYDROUS\POTASSIUM CHLORIDE\SODIUM CHLORIDE\SODIUM L [Concomitant]
     Active Substance: CALCIUM CHLORIDE ANHYDROUS\POTASSIUM CHLORIDE\SODIUM CHLORIDE\SODIUM LACTATE
     Dosage: UNK,UNK,UNK
     Route: 040
     Dates: start: 20230819, end: 20230819
  75. CALCIUM CHLORIDE ANHYDROUS\POTASSIUM CHLORIDE\SODIUM CHLORIDE\SODIUM L [Concomitant]
     Active Substance: CALCIUM CHLORIDE ANHYDROUS\POTASSIUM CHLORIDE\SODIUM CHLORIDE\SODIUM LACTATE
     Dosage: UNK,UNK,UNK
     Route: 040
     Dates: start: 20230820, end: 20230821
  76. DEXTROSE [Concomitant]
     Active Substance: DEXTROSE MONOHYDRATE
     Dosage: UNK,UNK,UNK
     Route: 040
     Dates: start: 20230819, end: 20230821
  77. DEXTROSE [Concomitant]
     Active Substance: DEXTROSE MONOHYDRATE
     Dosage: UNK
     Dates: start: 20240128, end: 20240128
  78. DIETARY SUPPLEMENT\PROBIOTICS [Concomitant]
     Active Substance: DIETARY SUPPLEMENT\PROBIOTICS NOS
     Indication: Diarrhoea
     Dosage: UNK,UNK,UNK
     Route: 048
     Dates: start: 20230821, end: 20230914
  79. DIETARY SUPPLEMENT\PROBIOTICS [Concomitant]
     Active Substance: DIETARY SUPPLEMENT\PROBIOTICS NOS
     Indication: Gastroenteritis
     Dosage: UNK
     Route: 048
     Dates: start: 20230915, end: 20240116
  80. LOXOPROFEN SODIUM [Concomitant]
     Active Substance: LOXOPROFEN SODIUM
     Indication: Parotitis
     Dosage: UNK,UNK,UNK
     Route: 048
     Dates: start: 20230912, end: 20230918
  81. LOXOPROFEN SODIUM [Concomitant]
     Active Substance: LOXOPROFEN SODIUM
     Dosage: UNK
     Route: 048
     Dates: start: 20231205, end: 20231218
  82. DIETARY SUPPLEMENT\PROBIOTICS [Concomitant]
     Active Substance: DIETARY SUPPLEMENT\PROBIOTICS NOS
     Dosage: UNK,UNK,UNK
     Route: 048
     Dates: start: 20230915
  83. TRANSAMIN [Concomitant]
     Active Substance: TRANEXAMIC ACID
     Indication: Oropharyngeal discomfort
     Dosage: UNK,UNK,UNK
     Route: 048
     Dates: start: 20230915, end: 20230921
  84. TRANSAMIN [Concomitant]
     Active Substance: TRANEXAMIC ACID
     Dosage: UNK,UNK,UNK
     Route: 048
     Dates: start: 20231130, end: 20231222
  85. AMBROXOL HYDROCHLORIDE [Concomitant]
     Active Substance: AMBROXOL HYDROCHLORIDE
     Indication: Product availability issue
     Dosage: UNK,UNK,UNK
     Route: 048
     Dates: start: 20231013, end: 20231101
  86. SODIUM CHLORIDE [Concomitant]
     Active Substance: SODIUM CHLORIDE
     Indication: Hyponatraemia
     Dosage: UNK,UNK,UNK
     Route: 048
     Dates: start: 20231109, end: 20231204
  87. SODIUM CHLORIDE [Concomitant]
     Active Substance: SODIUM CHLORIDE
     Dosage: 2.4 G
     Route: 048
     Dates: start: 20240111, end: 20240114
  88. SODIUM CHLORIDE [Concomitant]
     Active Substance: SODIUM CHLORIDE
     Dosage: 4.2 G
     Route: 048
     Dates: start: 20240115, end: 20240119
  89. KETOPROFEN [Concomitant]
     Active Substance: KETOPROFEN
     Indication: Arthralgia
     Dosage: TAPE
     Route: 062
     Dates: end: 20230530
  90. VFEND [Concomitant]
     Active Substance: VORICONAZOLE
     Indication: Antifungal prophylaxis
     Dosage: 300 MG, QD
     Route: 048
     Dates: start: 20231220, end: 20231220
  91. VFEND [Concomitant]
     Active Substance: VORICONAZOLE
     Dosage: 200 MG, QD
     Route: 048
     Dates: start: 20231221, end: 20231225
  92. VFEND [Concomitant]
     Active Substance: VORICONAZOLE
     Dosage: 200 MG, QD
     Route: 048
     Dates: start: 20240106, end: 20240109
  93. AMBISOME [Concomitant]
     Active Substance: AMPHOTERICIN B
     Indication: Antifungal prophylaxis
     Dosage: 75 MG, QD
     Route: 040
     Dates: start: 20240122, end: 20240206
  94. AMBISOME [Concomitant]
     Active Substance: AMPHOTERICIN B
     Indication: Antifungal prophylaxis
  95. Fradiomycin-gramicidin s [Concomitant]
     Dosage: UNK
     Route: 048
     Dates: start: 20231207, end: 20231220
  96. HUMULIN R [Concomitant]
     Active Substance: INSULIN HUMAN
     Dosage: UNK
     Route: 058
     Dates: start: 20231208, end: 20231208
  97. HUMULIN R [Concomitant]
     Active Substance: INSULIN HUMAN
     Dosage: UNK
     Route: 058
     Dates: start: 20240126, end: 20240126
  98. HUMULIN R [Concomitant]
     Active Substance: INSULIN HUMAN
     Dosage: UNK
     Route: 058
     Dates: start: 20240109, end: 20240125
  99. HUMULIN R [Concomitant]
     Active Substance: INSULIN HUMAN
     Dosage: UNK
     Route: 058
     Dates: start: 20240130, end: 20240207
  100. IPRAGLIFLOZIN L-PROLINE [Concomitant]
     Active Substance: IPRAGLIFLOZIN L-PROLINE
     Dosage: UNK
     Route: 048
     Dates: start: 20231209, end: 20240124
  101. VALGANCICLOVIR HYDROCHLORIDE [Concomitant]
     Active Substance: VALGANCICLOVIR HYDROCHLORIDE
     Dosage: UNK
     Route: 048
     Dates: start: 20231213, end: 20240105
  102. RISPERIDONE [Concomitant]
     Active Substance: RISPERIDONE
     Dosage: UNK
     Route: 048
     Dates: start: 20231225, end: 20231227
  103. FILGRASTIM [Concomitant]
     Active Substance: FILGRASTIM
     Dosage: UNK
     Route: 058
     Dates: start: 20231228, end: 20240103
  104. FILGRASTIM [Concomitant]
     Active Substance: FILGRASTIM
     Dosage: UNK
     Route: 058
     Dates: start: 20240115, end: 20240122
  105. VANCOMYCIN HYDROCHLORIDE [Concomitant]
     Active Substance: VANCOMYCIN HYDROCHLORIDE
     Dosage: UNK
     Route: 048
     Dates: start: 20240112, end: 20240125
  106. VANCOMYCIN HYDROCHLORIDE [Concomitant]
     Active Substance: VANCOMYCIN HYDROCHLORIDE
     Dosage: UNK
     Route: 040
     Dates: start: 20240130, end: 20240204
  107. METOCLOPRAMIDE [Concomitant]
     Active Substance: METOCLOPRAMIDE
     Dosage: UNK
     Route: 048
     Dates: start: 20240113, end: 20240113
  108. NEXIUM [Concomitant]
     Active Substance: ESOMEPRAZOLE MAGNESIUM
     Dosage: UNK
     Route: 048
     Dates: start: 20240116, end: 20240207
  109. CEFEPIME HYDROCHLORIDE [Concomitant]
     Active Substance: CEFEPIME HYDROCHLORIDE
     Dosage: UNK
     Route: 040
     Dates: start: 20240115, end: 20240129
  110. FUROSEMIDE [Concomitant]
     Active Substance: FUROSEMIDE
     Dosage: UNK
     Route: 040
     Dates: start: 20240116, end: 20240118
  111. FUROSEMIDE [Concomitant]
     Active Substance: FUROSEMIDE
     Dosage: UNK
     Dates: start: 20240201, end: 20240205
  112. Insulin glargine biosimilar 1 [Concomitant]
     Dosage: UNK
     Route: 058
     Dates: start: 20240116, end: 20240116
  113. KENKETU GLOVENIN-I [Concomitant]
     Active Substance: HUMAN IMMUNOGLOBULIN G
     Dosage: UNK
     Route: 040
     Dates: start: 20240116, end: 20240116
  114. KENKETU GLOVENIN-I [Concomitant]
     Active Substance: HUMAN IMMUNOGLOBULIN G
     Dosage: UNK
     Route: 040
     Dates: start: 20240130, end: 20240130
  115. Irradiated platelet concentrate-leukocytes reduced [Concomitant]
     Dosage: UNK
     Route: 040
     Dates: start: 20240116, end: 20240120
  116. Irradiated platelet concentrate-leukocytes reduced [Concomitant]
     Dosage: UNK
     Route: 040
     Dates: start: 20240122, end: 20240122
  117. POTASSIUM CHLORIDE [Concomitant]
     Active Substance: POTASSIUM CHLORIDE
     Dosage: UNK
     Dates: start: 20240118, end: 20240118
  118. PETROLATUM [Concomitant]
     Active Substance: PETROLATUM
     Dosage: UNK
     Dates: start: 20240119, end: 20240203
  119. Azunol [Concomitant]
     Dosage: UNK
     Dates: start: 20240119, end: 20240207
  120. HUMAN RED BLOOD CELL [Concomitant]
     Active Substance: HUMAN RED BLOOD CELL
     Dosage: UNK
     Route: 040
     Dates: start: 20240120, end: 20240120
  121. HUMAN RED BLOOD CELL [Concomitant]
     Active Substance: HUMAN RED BLOOD CELL
     Dosage: UNK
     Route: 040
     Dates: start: 20240201, end: 20240201
  122. DOPAMINE HYDROCHLORIDE [Concomitant]
     Active Substance: DOPAMINE HYDROCHLORIDE
     Dosage: UNK
     Route: 040
     Dates: start: 20240131, end: 20240207
  123. CYCLOPHOSPHAMIDE [Concomitant]
     Active Substance: CYCLOPHOSPHAMIDE
     Indication: Granulomatosis with polyangiitis
     Dosage: 500 MG
     Dates: start: 20240112, end: 20240112

REACTIONS (13)
  - Cytomegalovirus infection reactivation [Fatal]
  - Hepatic function abnormal [Fatal]
  - General physical health deterioration [Fatal]
  - Renal failure [Fatal]
  - Bronchopulmonary aspergillosis [Fatal]
  - Granulomatosis with polyangiitis [Fatal]
  - White blood cell count decreased [Recovered/Resolved]
  - Pneumonia [Recovering/Resolving]
  - Steroid diabetes [Not Recovered/Not Resolved]
  - Hyponatraemia [Recovering/Resolving]
  - Cognitive disorder [Recovering/Resolving]
  - Hyperlipidaemia [Recovering/Resolving]
  - Gastroenteritis [Recovering/Resolving]

NARRATIVE: CASE EVENT DATE: 20230529
